FAERS Safety Report 21625104 (Version 1)
Quarter: 2022Q4

REPORT INFORMATION
  Report Type: Report from Study
  Country: US (occurrence: US)
  Receive Date: 20221122
  Receipt Date: 20221122
  Transmission Date: 20230113
  Serious: No
  Sender: FDA-Public Use
  Company Number: US-ABBVIE-4207715

PATIENT
  Sex: Female

DRUGS (1)
  1. IMBRUVICA [Suspect]
     Active Substance: IBRUTINIB
     Indication: Chronic graft versus host disease
     Route: 048

REACTIONS (7)
  - Stomatitis [Unknown]
  - Contusion [Unknown]
  - Gastroenteritis viral [Unknown]
  - Sensory disturbance [Unknown]
  - Dyspepsia [Unknown]
  - Respiratory syncytial virus infection [Unknown]
  - Platelet count decreased [Unknown]
